FAERS Safety Report 5497869-9 (Version None)
Quarter: 2007Q4

REPORT INFORMATION
  Report Type: 
  Country: None (occurrence: None)
  Receive Date: 20071018
  Receipt Date: 20060914
  Transmission Date: 20080405
  Serious: Yes (Other)
  Sender: FDA-Public Use
  Company Number: 2006112723

PATIENT
  Age: 70 Year
  Sex: Female

DRUGS (9)
  1. GABAPENTIN [Suspect]
     Indication: DEPRESSION
     Dosage: (1200 MG)
     Dates: start: 19990101
  2. GABAPENTIN [Suspect]
     Indication: DIABETIC NEUROPATHY
     Dosage: (1200 MG)
     Dates: start: 19990101
  3. TRAMADOL HCL [Concomitant]
  4. CYMBALTA [Concomitant]
  5. CAPSAICIN (CAPSAICIN) [Concomitant]
  6. AMBIEN [Concomitant]
  7. ALL OTHER THERAPEUTIC PRODUCTS (ALL OTHER THERAPEUTIC PRODUCTS) [Concomitant]
  8. GLIMEPIRIDE [Concomitant]
  9. AMARYL [Concomitant]

REACTIONS (6)
  - BLOOD GLUCOSE INCREASED [None]
  - CRYING [None]
  - DIABETES MELLITUS [None]
  - DIABETIC NEUROPATHY [None]
  - DRUG INEFFECTIVE [None]
  - PAIN [None]
